FAERS Safety Report 7931796-X (Version None)
Quarter: 2011Q4

REPORT INFORMATION
  Report Type: 
  Country: None (occurrence: None)
  Receive Date: 20111121
  Receipt Date: 20111118
  Transmission Date: 20120403
  Serious: Yes (Death, Hospitalization)
  Sender: FDA-Public Use
  Company Number: DE-ABBOTT-11P-062-0855918-00

PATIENT
  Sex: Female
  Weight: 79 kg

DRUGS (3)
  1. HUMIRA [Suspect]
     Indication: RHEUMATOID ARTHRITIS
     Route: 058
     Dates: start: 20110603
  2. PREDNISOLONE [Concomitant]
     Indication: RHEUMATOID ARTHRITIS
     Dosage: DAILY DOSE: 5MG
     Route: 048
     Dates: start: 19980101
  3. ALENDRON ACID [Concomitant]
     Indication: OSTEOPOROSIS

REACTIONS (3)
  - CYTOMEGALOVIRUS INFECTION [None]
  - JAUNDICE [None]
  - CIRRHOSIS ALCOHOLIC [None]
